FAERS Safety Report 7808471-5 (Version None)
Quarter: 2011Q4

REPORT INFORMATION
  Report Type: 
  Country: None (occurrence: None)
  Receive Date: 20111007
  Receipt Date: 20110923
  Transmission Date: 20120403
  Serious: Yes (Other)
  Sender: FDA-Public Use
  Company Number: 1000020256

PATIENT

DRUGS (9)
  1. DICLECTIN [Suspect]
     Dosage: TRANSPLACENTAL
     Route: 064
  2. CLOMID [Suspect]
     Dosage: TRANSPLACENTAL
     Route: 064
  3. TRAMADOL HYDROCHLORIDE/ACETAMINOPHEN [Suspect]
     Dosage: TRANSPLACENTAL
     Route: 064
  4. FLEXERIL [Suspect]
     Dosage: 20 MG (20 MG,1 IN 1 D), TRANSPLACENTAL; 10 MG (10 MG, 1 IN 1 D), TRANSPLACENTAL
     Route: 064
  5. IMOVANE (ZOPICLONE) (TABLETS) [Suspect]
     Dosage: 7.5 MG (7.5 MG, 1 IN 1 D), T4RANSPLACENTAL)
     Route: 064
  6. CELEXA [Suspect]
     Dosage: 20 MG (20 MG, 1 IN 1 D), TRANSPLACENTAL; 40 MG (40 MG, 1 IN 1 D), TRANSPLACENTAL
     Route: 064
  7. OXYCONTIN [Suspect]
     Dosage: 30 MG (30 MG, 1 IN 1 D), TRANSPLACENTAL
     Route: 064
  8. NALOXONE [Suspect]
     Dosage: TRANSPLACENTAL
     Route: 064
  9. LIDOCAINE [Suspect]
     Dosage: TRANSPLACENTAL
     Route: 064

REACTIONS (2)
  - MATERNAL DRUGS AFFECTING FOETUS [None]
  - DRUG WITHDRAWAL SYNDROME NEONATAL [None]
